FAERS Safety Report 16653274 (Version 1)
Quarter: 2019Q3

REPORT INFORMATION
  Report Type: Spontaneous
  Country: FR (occurrence: FR)
  Receive Date: 20190731
  Receipt Date: 20190731
  Transmission Date: 20191004
  Serious: Yes (Death, Other)
  Sender: FDA-Public Use
  Company Number: FR-JNJFOC-20190742040

PATIENT
  Sex: Male
  Weight: 70 kg

DRUGS (12)
  1. GUTRON [Concomitant]
     Active Substance: MIDODRINE
     Route: 065
  2. KALEORID [Concomitant]
     Active Substance: POTASSIUM CHLORIDE
     Route: 065
  3. DEXERYL                            /01579901/ [Concomitant]
     Active Substance: GLYCERIN\MINERAL OIL\PETROLATUM
     Route: 065
  4. PRINCI B [Concomitant]
     Route: 065
  5. LAROXYL [Concomitant]
     Active Substance: AMITRIPTYLINE HYDROCHLORIDE
     Route: 065
  6. PROPRANOLOL [Concomitant]
     Active Substance: PROPRANOLOL HYDROCHLORIDE
     Route: 065
  7. DAIVOBET [Concomitant]
     Active Substance: BETAMETHASONE DIPROPIONATE\CALCIPOTRIENE
  8. PANTOPRAZOLE [Concomitant]
     Active Substance: PANTOPRAZOLE
  9. HUMIRA [Concomitant]
     Active Substance: ADALIMUMAB
     Dosage: 80 MG PUIS 40 MG/15 JOURS JUSQU^AU 20/01/2019
     Route: 058
     Dates: start: 20180712, end: 20190120
  10. MYCOSTER                           /00619302/ [Concomitant]
     Active Substance: CICLOPIROX OLAMINE
     Route: 065
  11. STELARA [Suspect]
     Active Substance: USTEKINUMAB
     Indication: PSORIASIS
     Dosage: 45 MG PUIS 1 MOIS PLUS TARD 40 MG/12 SEMAINES
     Route: 058
     Dates: start: 201902, end: 20190606
  12. DUPHALAC [Concomitant]
     Active Substance: LACTULOSE
     Route: 065

REACTIONS (1)
  - Cerebral haematoma [Fatal]

NARRATIVE: CASE EVENT DATE: 20190601
